FAERS Safety Report 25903898 (Version 1)
Quarter: 2025Q4

REPORT INFORMATION
  Report Type: Spontaneous
  Country: GB (occurrence: GB)
  Receive Date: 20251010
  Receipt Date: 20251010
  Transmission Date: 20260118
  Serious: Yes (Other)
  Sender: AUROBINDO
  Company Number: GB-MHRA-EMIS-4978-de5eb6ea-51dc-4446-9c11-4533b6a80d6c

PATIENT
  Age: 49 Year
  Sex: Male

DRUGS (3)
  1. ATORVASTATIN [Suspect]
     Active Substance: ATORVASTATIN
     Indication: Product used for unknown indication
     Dosage: UNK UNK, DAILY
     Route: 065
     Dates: start: 20250513, end: 20250610
  2. ROSUVASTATIN [Concomitant]
     Active Substance: ROSUVASTATIN
     Indication: Product used for unknown indication
     Dosage: ONE TO BE TAKEN EACH NIGHT FOR CHOLESTEROL, PLEASE INCREASE TO 2 TABLETS AFTER 2-3 WEEKS AS PER CARD
     Route: 065
     Dates: start: 20250314, end: 20250426
  3. ATORVASTATIN [Concomitant]
     Active Substance: ATORVASTATIN
     Indication: Product used for unknown indication
     Dosage: UNK UNK, DAILY
     Route: 065
     Dates: start: 20250501, end: 20250610

REACTIONS (1)
  - Hepatic enzyme abnormal [Unknown]
